FAERS Safety Report 10948419 (Version 2)
Quarter: 2015Q2

REPORT INFORMATION
  Report Type: Spontaneous
  Country: JP (occurrence: JP)
  Receive Date: 20150324
  Receipt Date: 20150521
  Transmission Date: 20150821
  Serious: Yes (Hospitalization)
  Sender: FDA-Public Use
  Company Number: JP-EISAI MEDICAL RESEARCH-EC-2015-005140

PATIENT
  Age: 65 Year
  Sex: Female
  Weight: 46 kg

DRUGS (4)
  1. COLIOPAN [Suspect]
     Active Substance: BUTROPIUM BROMIDE
     Indication: PRODUCT USED FOR UNKNOWN INDICATION
     Route: 048
     Dates: start: 20120427, end: 20120514
  2. PARIET [Suspect]
     Active Substance: RABEPRAZOLE SODIUM
     Indication: HELICOBACTER GASTRITIS
     Route: 048
     Dates: start: 20120427, end: 20120507
  3. PARIET [Suspect]
     Active Substance: RABEPRAZOLE SODIUM
     Route: 048
     Dates: start: 20120515, end: 20120516
  4. LANSAP [Suspect]
     Active Substance: AMOXICILLIN\CLARITHROMYCIN\LANSOPRAZOLE
     Indication: PRODUCT USED FOR UNKNOWN INDICATION
     Route: 048
     Dates: start: 20120508, end: 20120514

REACTIONS (1)
  - Stevens-Johnson syndrome [Recovering/Resolving]

NARRATIVE: CASE EVENT DATE: 20120516
